FAERS Safety Report 25263254 (Version 1)
Quarter: 2025Q2

REPORT INFORMATION
  Report Type: Spontaneous
  Country: IN (occurrence: IN)
  Receive Date: 20250502
  Receipt Date: 20250502
  Transmission Date: 20250717
  Serious: Yes (Death)
  Sender: MYLAN
  Company Number: IN-MYLANLABS-2025M1036231

PATIENT
  Age: 76 Year
  Sex: Female

DRUGS (8)
  1. SUNITINIB [Suspect]
     Active Substance: SUNITINIB
     Indication: Metastatic renal cell carcinoma
     Dosage: 37.5 MILLIGRAM, QD, FOR TWO WEEKS FOLLOWED BY ONE WEEK OFF
  2. SUNITINIB [Suspect]
     Active Substance: SUNITINIB
     Dosage: 37.5 MILLIGRAM, QD, FOR TWO WEEKS FOLLOWED BY ONE WEEK OFF
     Route: 065
  3. SUNITINIB [Suspect]
     Active Substance: SUNITINIB
     Dosage: 37.5 MILLIGRAM, QD, FOR TWO WEEKS FOLLOWED BY ONE WEEK OFF
     Route: 065
  4. SUNITINIB [Suspect]
     Active Substance: SUNITINIB
     Dosage: 37.5 MILLIGRAM, QD, FOR TWO WEEKS FOLLOWED BY ONE WEEK OFF
  5. ZOLEDRONIC ACID [Suspect]
     Active Substance: ZOLEDRONIC ACID
     Indication: Metastatic renal cell carcinoma
  6. ZOLEDRONIC ACID [Suspect]
     Active Substance: ZOLEDRONIC ACID
     Route: 065
  7. ZOLEDRONIC ACID [Suspect]
     Active Substance: ZOLEDRONIC ACID
     Route: 065
  8. ZOLEDRONIC ACID [Suspect]
     Active Substance: ZOLEDRONIC ACID

REACTIONS (2)
  - Drug ineffective [Fatal]
  - Off label use [Unknown]
